FAERS Safety Report 20960908 (Version 1)
Quarter: 2022Q2

REPORT INFORMATION
  Report Type: Spontaneous
  Country: US (occurrence: US)
  Receive Date: 20220615
  Receipt Date: 20220615
  Transmission Date: 20220720
  Serious: No
  Sender: FDA-Public Use
  Company Number: US-AMGEN-USASP2022100346

PATIENT
  Sex: Female

DRUGS (19)
  1. OTEZLA [Suspect]
     Active Substance: APREMILAST
     Indication: Behcet^s syndrome
     Dosage: 30 MILLIGRAM, BID
     Route: 048
  2. COLCHICINE [Concomitant]
     Active Substance: COLCHICINE
     Dosage: 0.6 MILLIGRAM
  3. DULOXETINE [Concomitant]
     Active Substance: DULOXETINE
     Dosage: 20 MILLIGRAM
  4. EMGALITY [Concomitant]
     Active Substance: GALCANEZUMAB-GNLM
     Dosage: 120 MILLIGRAM PER MILLILITRE
  5. FUROSEMIDE [Concomitant]
     Active Substance: FUROSEMIDE
     Dosage: 40 MILLIGRAM
  6. HYDROXYCHLOROQUINE SULFATE [Concomitant]
     Active Substance: HYDROXYCHLOROQUINE SULFATE
     Dosage: 200 MILLIGRAM
  7. KETOROLAC [Concomitant]
     Active Substance: KETOROLAC TROMETHAMINE
     Dosage: 10 MILLIGRAM
  8. OMEPRAZOLE [Concomitant]
     Active Substance: OMEPRAZOLE
  9. ONDANSETRON [Concomitant]
     Active Substance: ONDANSETRON
     Dosage: 4 MILLIGRAM
  10. PREDNISONE [Concomitant]
     Active Substance: PREDNISONE
     Dosage: 10 MILLIGRAM
  11. PREDNISONE [Concomitant]
     Active Substance: PREDNISONE
     Dosage: 1 MILLIGRAM
  12. PREDNISONE [Concomitant]
     Active Substance: PREDNISONE
     Dosage: 5 MILLIGRAM
  13. PREGABALIN [Concomitant]
     Active Substance: PREGABALIN
     Dosage: 100 MILLIGRAM
  14. PREGABALIN [Concomitant]
     Active Substance: PREGABALIN
     Dosage: 50 MILLIGRAM
  15. PROMETHAZINE [Concomitant]
     Active Substance: PROMETHAZINE HYDROCHLORIDE
     Dosage: UNK
  16. PROMETHAZINE [Concomitant]
     Active Substance: PROMETHAZINE HYDROCHLORIDE
     Dosage: 12.5 MILLIGRAM
  17. RIZATRIPTAN [Concomitant]
     Active Substance: RIZATRIPTAN
     Dosage: 10 MILLIGRAM
  18. SOOLANTRA [Concomitant]
     Active Substance: IVERMECTIN
     Dosage: 1 PERCENT
  19. TIZANIDINE [Concomitant]
     Active Substance: TIZANIDINE
     Dosage: 4 MILLIGRAM

REACTIONS (3)
  - Discomfort [Not Recovered/Not Resolved]
  - Nausea [Not Recovered/Not Resolved]
  - Headache [Not Recovered/Not Resolved]
